FAERS Safety Report 26205432 (Version 2)
Quarter: 2025Q4

REPORT INFORMATION
  Report Type: Report from Study
  Country: US (occurrence: US)
  Receive Date: 20251228
  Receipt Date: 20251230
  Transmission Date: 20260118
  Serious: Yes (Other)
  Sender: ABBVIE
  Company Number: US-JNJFOC-20251220882

PATIENT

DRUGS (4)
  1. IBRUTINIB [Suspect]
     Active Substance: IBRUTINIB
     Indication: Chronic lymphocytic leukaemia
     Route: 048
  2. IBRUTINIB [Suspect]
     Active Substance: IBRUTINIB
     Indication: Chronic lymphocytic leukaemia
     Route: 048
  3. VENETOCLAX [Suspect]
     Active Substance: VENETOCLAX
     Indication: Chronic lymphocytic leukaemia
     Route: 065
  4. VENETOCLAX [Suspect]
     Active Substance: VENETOCLAX
     Indication: Chronic lymphocytic leukaemia
     Route: 065

REACTIONS (20)
  - Hepatic failure [Unknown]
  - Atrial flutter [Unknown]
  - Hypertension [Unknown]
  - Fatigue [Unknown]
  - Infection [Unknown]
  - Arthralgia [Unknown]
  - Neutropenia [Unknown]
  - Muscle spasms [Unknown]
  - Diarrhoea [Unknown]
  - Haemorrhoidal haemorrhage [Unknown]
  - Headache [Unknown]
  - Off label use [Unknown]
  - Rash [Unknown]
  - Renal failure [Unknown]
  - Contusion [Unknown]
  - Lymphocytosis [Unknown]
  - Atrial fibrillation [Unknown]
  - Thrombocytopenia [Unknown]
  - Stomatitis [Unknown]
  - Pneumonia [Unknown]
